FAERS Safety Report 5935162-8 (Version None)
Quarter: 2008Q4

REPORT INFORMATION
  Report Type: 
  Country: None (occurrence: None)
  Receive Date: 20081030
  Receipt Date: 20081020
  Transmission Date: 20090506
  Serious: Yes (Life-Threatening, Hospitalization, Other)
  Sender: FDA-Public Use
  Company Number: US-BAYER-200833211NA

PATIENT
  Sex: Male
  Weight: 65 kg

DRUGS (7)
  1. NEXAVAR [Suspect]
     Indication: PANCREATIC CARCINOMA
     Dosage: TOTAL DAILY DOSE: 800 MG  UNIT DOSE: 200 MG
     Route: 048
     Dates: start: 20080902, end: 20080908
  2. REGLAN [Concomitant]
     Dosage: TOTAL DAILY DOSE: 40 MG
     Route: 048
  3. COMPAZINE [Concomitant]
     Dosage: TOTAL DAILY DOSE: 40 MG
     Route: 048
  4. NEXIUM [Concomitant]
     Dosage: TOTAL DAILY DOSE: 40 MG
     Route: 048
  5. AMBIEN CR [Concomitant]
     Dosage: TOTAL DAILY DOSE: 12.5 MG
     Route: 048
     Dates: start: 20080905
  6. COUMADIN [Concomitant]
     Dosage: TOTAL DAILY DOSE: 5 MG
  7. NORCO [Concomitant]

REACTIONS (9)
  - ABDOMINAL PAIN UPPER [None]
  - DROOLING [None]
  - DYSKINESIA [None]
  - HYPERTONIA [None]
  - HYPOPHAGIA [None]
  - MASKED FACIES [None]
  - MUSCLE CONTRACTIONS INVOLUNTARY [None]
  - PARKINSON'S DISEASE [None]
  - SPEECH DISORDER [None]
